FAERS Safety Report 8355068-7 (Version None)
Quarter: 2012Q2

REPORT INFORMATION
  Report Type: 
  Country: None (occurrence: None)
  Receive Date: 20120511
  Receipt Date: 20120507
  Transmission Date: 20120825
  Serious: Yes (Life-Threatening, Other)
  Sender: FDA-Public Use
  Company Number: FR-ELI_LILLY_AND_COMPANY-FR201205003124

PATIENT
  Age: 60 Year
  Sex: Male

DRUGS (3)
  1. CARBOPLATIN [Concomitant]
     Indication: LUNG NEOPLASM MALIGNANT
     Dosage: UNK, 3 CYCLES
     Dates: start: 20080818
  2. CARBOPLATIN [Concomitant]
     Dosage: UNK, 11 CYCLES
     Dates: start: 20101102
  3. ALIMTA [Suspect]
     Indication: LUNG NEOPLASM MALIGNANT
     Dosage: UNK, UNKNOWN
     Route: 042
     Dates: start: 20111123

REACTIONS (3)
  - RESPIRATORY FAILURE [None]
  - DERMATITIS ALLERGIC [None]
  - ANAPHYLACTIC SHOCK [None]
